FAERS Safety Report 23124537 (Version 1)
Quarter: 2023Q4

REPORT INFORMATION
  Report Type: Spontaneous
  Country: CN (occurrence: CN)
  Receive Date: 20231030
  Receipt Date: 20231030
  Transmission Date: 20240110
  Serious: Yes (Hospitalization)
  Sender: FDA-Public Use
  Company Number: CN-GE HEALTHCARE-2023CSU009604

PATIENT
  Age: 82 Year
  Sex: Female
  Weight: 52 kg

DRUGS (6)
  1. VISIPAQUE [Suspect]
     Active Substance: IODIXANOL
     Indication: Computerised tomogram thorax
     Dosage: 40 ML, SINGLE
     Route: 042
     Dates: start: 20221116, end: 20221116
  2. VISIPAQUE [Suspect]
     Active Substance: IODIXANOL
     Indication: Computerised tomogram abdomen
     Dosage: 90 ML, SINGLE
     Route: 042
     Dates: start: 20221117, end: 20221117
  3. VISIPAQUE [Suspect]
     Active Substance: IODIXANOL
     Indication: Gastric cancer
  4. VISIPAQUE [Suspect]
     Active Substance: IODIXANOL
     Indication: Adenocarcinoma gastric
  5. VISIPAQUE [Suspect]
     Active Substance: IODIXANOL
     Indication: Cervix cancer metastatic
  6. VISIPAQUE [Suspect]
     Active Substance: IODIXANOL
     Indication: Metastases to peritoneum

REACTIONS (1)
  - Dermatitis bullous [Recovering/Resolving]

NARRATIVE: CASE EVENT DATE: 20221118
